FAERS Safety Report 14661299 (Version 1)
Quarter: 2018Q1

REPORT INFORMATION
  Report Type: Report from Study
  Country: JP (occurrence: JP)
  Receive Date: 20180320
  Receipt Date: 20180320
  Transmission Date: 20180509
  Serious: Yes (Death)
  Sender: FDA-Public Use
  Company Number: JP-MYLANLABS-2018M1018102

PATIENT

DRUGS (5)
  1. FLUOROURACIL. [Suspect]
     Active Substance: FLUOROURACIL
     Indication: COLORECTAL CANCER METASTATIC
     Dosage: 12 CYCLES AS PART OF FOLFOXIRI REGIMEN AND BEVACIZUMAB AS FIRST-LINE CHEMOTHERAPY; FOLLOWED BY MA...
     Route: 065
  2. OXALIPLATIN. [Suspect]
     Active Substance: OXALIPLATIN
     Indication: COLORECTAL CANCER METASTATIC
     Dosage: 12 CYCLES AS PART OF FOLFOXIRI REGIMEN AND BEVACIZUMAB AS FIRST-LINE CHEMOTHERAPY
     Route: 065
  3. IRINOTECAN [Suspect]
     Active Substance: IRINOTECAN
     Indication: COLORECTAL CANCER METASTATIC
     Dosage: 12 CYCLES AS PART OF FOLFOXIRI REGIMEN AND BEVACIZUMAB AS FIRST-LINE CHEMOTHERAPY
     Route: 065
  4. CALCIUM FOLINATE [Suspect]
     Active Substance: LEUCOVORIN CALCIUM
     Indication: COLORECTAL CANCER METASTATIC
     Dosage: 12 CYCLES AS PART OF FOLFOXIRI REGIMEN AND BEVACIZUMAB AS FIRST-LINE CHEMOTHERAPY
     Route: 065
  5. BEVACIZUMAB. [Suspect]
     Active Substance: BEVACIZUMAB
     Indication: COLORECTAL CANCER METASTATIC
     Dosage: 12 CYCLES ALONG WITH THE FOLFOXIRI REGIMEN AS FIRST-LINE CHEMOTHERAPY; FOLLOWED BY MAINTENANCE TH...
     Route: 065

REACTIONS (1)
  - Death [Fatal]
